FAERS Safety Report 25197062 (Version 2)
Quarter: 2025Q2

REPORT INFORMATION
  Report Type: Spontaneous
  Country: US (occurrence: US)
  Receive Date: 20250415
  Receipt Date: 20250611
  Transmission Date: 20250716
  Serious: No
  Sender: CSL BEHRING
  Company Number: US-BEH-2025201234

PATIENT
  Sex: Female

DRUGS (16)
  1. PRIVIGEN [Suspect]
     Active Substance: HUMAN IMMUNOGLOBULIN G
     Indication: Stiff person syndrome
     Dosage: 40 G, QOW
     Route: 042
     Dates: start: 20250114
  2. BACLOFEN [Concomitant]
     Active Substance: BACLOFEN
  3. PRASTERONE [Concomitant]
     Active Substance: PRASTERONE
  4. DIAZEPAM [Concomitant]
     Active Substance: DIAZEPAM
  5. DIPHENHYDRAMINE [Concomitant]
     Active Substance: DIPHENHYDRAMINE
  6. DIPHENHYDRAMINE [Concomitant]
     Active Substance: DIPHENHYDRAMINE
  7. EPINEPHRINE [Concomitant]
     Active Substance: EPINEPHRINE
  8. EZETIMIBE [Concomitant]
     Active Substance: EZETIMIBE
  9. FLUTICASONE [Concomitant]
     Active Substance: FLUTICASONE
  10. GABAPENTIN [Concomitant]
     Active Substance: GABAPENTIN
  11. GABAPENTIN [Concomitant]
     Active Substance: GABAPENTIN
  12. Hep lock [Concomitant]
  13. A-HYDROCORT [Concomitant]
     Active Substance: HYDROCORTISONE SODIUM SUCCINATE
  14. LEVOTHYROXINE [Concomitant]
     Active Substance: LEVOTHYROXINE
  15. POTASSIUM [Concomitant]
     Active Substance: POTASSIUM
  16. SODIUM CHLORIDE [Concomitant]
     Active Substance: SODIUM CHLORIDE

REACTIONS (6)
  - Pain [Unknown]
  - Arthralgia [Unknown]
  - Joint stiffness [Unknown]
  - Balance disorder [Unknown]
  - Back pain [Unknown]
  - Pain in extremity [Unknown]
